FAERS Safety Report 10750285 (Version 1)
Quarter: 2015Q1

REPORT INFORMATION
  Report Type: Spontaneous
  Country: SE (occurrence: SE)
  Receive Date: 20150129
  Receipt Date: 20150129
  Transmission Date: 20150721
  Serious: Yes (Other)
  Sender: FDA-Public Use
  Company Number: SE-MERCK-1501SWE009662

PATIENT
  Age: 69 Year
  Sex: Male

DRUGS (1)
  1. EZETROL [Suspect]
     Active Substance: EZETIMIBE
     Indication: BLOOD TRIGLYCERIDES INCREASED
     Dosage: 10 MG, QD
     Route: 048
     Dates: start: 20140903, end: 20150115

REACTIONS (3)
  - Lip swelling [Not Recovered/Not Resolved]
  - Genital swelling [Not Recovered/Not Resolved]
  - Prostatomegaly [Not Recovered/Not Resolved]

NARRATIVE: CASE EVENT DATE: 20140924
